FAERS Safety Report 8355310-2 (Version None)
Quarter: 2012Q2

REPORT INFORMATION
  Report Type: 
  Country: None (occurrence: None)
  Receive Date: 20120511
  Receipt Date: 20110324
  Transmission Date: 20120825
  Serious: No
  Sender: FDA-Public Use
  Company Number: US-TEVA-2011001402

PATIENT
  Sex: Male
  Weight: 95.34 kg

DRUGS (9)
  1. NUVIGIL [Suspect]
     Indication: NARCOLEPSY
     Dosage: 150 MILLIGRAM;
     Route: 048
     Dates: start: 20110223, end: 20110301
  2. LISINOPRIL [Concomitant]
  3. CLONAZEPAM [Concomitant]
     Dates: start: 20101201
  4. CYCLOBENZAPRINE [Concomitant]
     Dates: start: 20090101
  5. GABAPENTIN [Concomitant]
  6. SIMVASTATIN [Concomitant]
  7. NUVIGIL [Suspect]
     Dosage: 75 MILLIGRAM;
     Route: 048
     Dates: start: 20110201, end: 20110301
  8. NUVIGIL [Suspect]
     Dosage: 150 MILLIGRAM;
     Route: 048
     Dates: start: 20110301, end: 20110323
  9. TRAMADOL HYDROCHLORIDE [Concomitant]

REACTIONS (2)
  - DRUG INEFFECTIVE [None]
  - NAUSEA [None]
